FAERS Safety Report 24120482 (Version 1)
Quarter: 2024Q3

REPORT INFORMATION
  Report Type: Report from Study
  Country: CO (occurrence: CO)
  Receive Date: 20240722
  Receipt Date: 20240722
  Transmission Date: 20241017
  Serious: Yes (Hospitalization, Other)
  Sender: UCB
  Company Number: CO-UCBSA-2024035166

PATIENT
  Sex: Male
  Weight: 3.35 kg

DRUGS (10)
  1. CERTOLIZUMAB PEGOL [Suspect]
     Active Substance: CERTOLIZUMAB PEGOL
     Indication: Rheumatoid arthritis
     Dosage: 400 MILLIGRAM, EV 30 DAYS
     Route: 064
     Dates: start: 20240105, end: 20240505
  2. CERTOLIZUMAB PEGOL [Suspect]
     Active Substance: CERTOLIZUMAB PEGOL
     Dosage: 400 MILLIGRAM, EV 30 DAYS
     Route: 063
     Dates: start: 20240706
  3. HYDROXYCHLOROQUINE [Concomitant]
     Active Substance: HYDROXYCHLOROQUINE
     Indication: Hypertension
     Dosage: 250 MILLIGRAM, ONCE DAILY (QD)
     Route: 064
     Dates: start: 20190101
  4. HYDROXYCHLOROQUINE [Concomitant]
     Active Substance: HYDROXYCHLOROQUINE
     Indication: Rheumatoid arthritis
     Dosage: 200 MILLIGRAM, ONCE DAILY (QD)
     Route: 063
  5. METHYLDOPA [Concomitant]
     Active Substance: METHYLDOPA
     Indication: Hypertension
     Dosage: 25 MILLIGRAM EVERY 12 HOURS
     Route: 064
     Dates: start: 20230916, end: 20240606
  6. METHYLDOPA [Concomitant]
     Active Substance: METHYLDOPA
     Dosage: 25 MILLIGRAM EVERY 12 HOURS
     Route: 063
     Dates: start: 20240608, end: 20240630
  7. LOSARTAN [Concomitant]
     Active Substance: LOSARTAN
     Indication: Hypertension
     Dosage: 50 MILLIGRAM EVERY 12 HOURS
     Route: 064
     Dates: start: 20230105, end: 20230915
  8. CEPHRADINE [Concomitant]
     Active Substance: CEPHRADINE
     Indication: Caesarean section
     Dosage: 500 MILLIGRAM, 3X/DAY (TID)
     Route: 063
     Dates: start: 202406
  9. FERROUS SULFATE [Concomitant]
     Active Substance: FERROUS SULFATE
     Indication: Caesarean section
     Dosage: 250 MILLIGRAM, ONCE DAILY (QD)
     Route: 063
     Dates: start: 202406
  10. ACETAMINOPHEN [Concomitant]
     Active Substance: ACETAMINOPHEN
     Indication: Caesarean section
     Dosage: 500 MILLIGRAM, 3X/DAY (TID)
     Route: 063
     Dates: start: 202406

REACTIONS (5)
  - Cardiac murmur [Unknown]
  - Neonatal disorder [Unknown]
  - Oxygen therapy [Unknown]
  - Exposure via breast milk [Unknown]
  - Maternal exposure during pregnancy [Unknown]

NARRATIVE: CASE EVENT DATE: 20240101
